FAERS Safety Report 11841071 (Version 1)
Quarter: 2015Q4

REPORT INFORMATION
  Report Type: Spontaneous
  Country: US (occurrence: US)
  Receive Date: 20151216
  Receipt Date: 20151216
  Transmission Date: 20160305
  Serious: No
  Sender: FDA-Public Use
  Company Number: US-B.I. PHARMACEUTICALS,INC./RIDGEFIELD-2015-BI-68273BP

PATIENT
  Age: 68 Year
  Sex: Female
  Weight: 96 kg

DRUGS (14)
  1. TRAMADOL. [Concomitant]
     Active Substance: TRAMADOL
     Indication: PAIN
     Dosage: 12.5 MG
     Route: 048
  2. VALIUM [Concomitant]
     Active Substance: DIAZEPAM
     Indication: DEPRESSION
     Dosage: 1.6667 MG
     Route: 048
  3. LOPRESSOR [Concomitant]
     Active Substance: METOPROLOL TARTRATE
     Indication: ATRIAL FIBRILLATION
     Dosage: 50 MG
     Route: 048
  4. XANAX [Concomitant]
     Active Substance: ALPRAZOLAM
     Indication: ANXIETY
     Dosage: 0.0833 MG
     Route: 048
  5. LASIX [Concomitant]
     Active Substance: FUROSEMIDE
     Indication: FLUID RETENTION
     Dosage: 80 MG
     Route: 048
  6. NEVANAC [Concomitant]
     Active Substance: NEPAFENAC
     Indication: MACULAR DEGENERATION
     Dosage: DOSE PER APPLICATION: 0.1%; DAILY DOSE: 0.025%
     Route: 065
  7. FENTANYL. [Concomitant]
     Active Substance: FENTANYL
     Indication: PAIN
     Dosage: 100 MCG
     Route: 061
  8. PRADAXA [Suspect]
     Active Substance: DABIGATRAN ETEXILATE MESYLATE
     Indication: ATRIAL FIBRILLATION
     Dosage: 75 MG
     Route: 048
     Dates: start: 2011
  9. ASTELIN [Concomitant]
     Active Substance: AZELASTINE HYDROCHLORIDE
     Indication: PRODUCT USED FOR UNKNOWN INDICATION
     Dosage: FORMULATION: NASAL SPRAY, DOSE PER APPLICATION: 0.1%; DAILY DOSE: 0.05%
     Route: 045
  10. DIPROLENE [Concomitant]
     Active Substance: BETAMETHASONE DIPROPIONATE
     Indication: STAPHYLOCOCCAL INFECTION
     Dosage: DOSE PER APPLICATION: 0.05%; DAILY DOSE: 0.5%
     Route: 061
  11. ZESTRIL [Concomitant]
     Active Substance: LISINOPRIL
     Indication: FLUID RETENTION
     Dosage: 5 MG
     Route: 048
  12. ALDACTONE [Concomitant]
     Active Substance: SPIRONOLACTONE
     Indication: ADRENAL CYST
     Dosage: 12.5 MG
     Route: 048
  13. NEURONTIN [Concomitant]
     Active Substance: GABAPENTIN
     Indication: PAIN
     Dosage: 300 MCG
     Route: 048
  14. PRED FORTE [Concomitant]
     Active Substance: PREDNISOLONE ACETATE
     Indication: MACULAR DEGENERATION
     Dosage: DOSE PER APPLICATION: 0.1%, DAILY DOSE: 0.025%
     Route: 065

REACTIONS (5)
  - Blood pressure decreased [Recovered/Resolved]
  - Blood count abnormal [Not Recovered/Not Resolved]
  - Full blood count decreased [Not Recovered/Not Resolved]
  - Renal impairment [Not Recovered/Not Resolved]
  - Weight increased [Not Recovered/Not Resolved]

NARRATIVE: CASE EVENT DATE: 2015
